FAERS Safety Report 24618926 (Version 1)
Quarter: 2024Q4

REPORT INFORMATION
  Report Type: Spontaneous
  Country: US (occurrence: None)
  Receive Date: 20241113
  Receipt Date: 20241113
  Transmission Date: 20250114
  Serious: Yes (Other)
  Sender: Public
  Company Number: None

PATIENT
  Age: 74 Year
  Sex: Male
  Weight: 97.2 kg

DRUGS (3)
  1. PROFEND [Suspect]
     Active Substance: POVIDONE-IODINE
     Indication: Preoperative care
     Dosage: OTHER QUANTITY : 1 SWAB;?
     Dates: start: 20240516, end: 20240516
  2. PRIMIDONE [Concomitant]
     Active Substance: PRIMIDONE
  3. PROPRANOLOL [Concomitant]
     Active Substance: PROPRANOLOL HYDROCHLORIDE

REACTIONS (5)
  - Throat irritation [None]
  - Lip swelling [None]
  - Parosmia [None]
  - Pharyngeal swelling [None]
  - Decreased appetite [None]

NARRATIVE: CASE EVENT DATE: 20240516
